FAERS Safety Report 6772672-8 (Version None)
Quarter: 2010Q2

REPORT INFORMATION
  Report Type: 
  Country: None (occurrence: None)
  Receive Date: 20100616
  Receipt Date: 20090611
  Transmission Date: 20101027
  Serious: No
  Sender: FDA-Public Use
  Company Number: US-ASTRAZENECA-2009UW12233

PATIENT
  Sex: Female
  Weight: 68.9 kg

DRUGS (4)
  1. PULMICORT FLEXHALER [Suspect]
     Indication: ASTHMA
     Route: 055
     Dates: start: 20090330
  2. ALBUTEROL [Concomitant]
  3. SINGULAIR [Concomitant]
  4. CLARITIN [Concomitant]

REACTIONS (1)
  - GLOSSODYNIA [None]
